FAERS Safety Report 5627863-6 (Version None)
Quarter: 2008Q1

REPORT INFORMATION
  Report Type: 
  Country: None (occurrence: None)
  Receive Date: 20080215
  Receipt Date: 20080206
  Transmission Date: 20080703
  Serious: Yes (Other)
  Sender: FDA-Public Use
  Company Number: JP-WYE-H02618008

PATIENT

DRUGS (1)
  1. AMIODARONE HCL [Suspect]
     Dosage: 100 MG TABLET (DOSE AND REGIMEN UNKNOWN)
     Route: 048

REACTIONS (2)
  - HYPOGLYCAEMIA [None]
  - SOMNOLENCE [None]
